FAERS Safety Report 14659016 (Version 1)
Quarter: 2018Q1

REPORT INFORMATION
  Report Type: Spontaneous
  Country: US (occurrence: US)
  Receive Date: 20180320
  Receipt Date: 20180320
  Transmission Date: 20180509
  Serious: Yes (Hospitalization)
  Sender: FDA-Public Use
  Company Number: US-LEXICON PHARMACEUTICALS, INC-18-1606-00276

PATIENT
  Sex: Female

DRUGS (13)
  1. TELOTRISTAT ETHYL [Suspect]
     Active Substance: TELOTRISTAT ETHYL
     Indication: CARCINOID SYNDROME
     Route: 048
     Dates: start: 20170602
  2. OMEPRAZOLE. [Concomitant]
     Active Substance: OMEPRAZOLE
  3. LEVOTHYROXINE. [Concomitant]
     Active Substance: LEVOTHYROXINE
  4. LOPERAMIDE [Concomitant]
     Active Substance: LOPERAMIDE
  5. CYANOCOBALAM INJ [Concomitant]
  6. CALCIUM [Concomitant]
     Active Substance: CALCIUM
  7. CLONIDINE. [Concomitant]
     Active Substance: CLONIDINE
  8. OCREOTIDE [Concomitant]
  9. HYDRALAZINE [Concomitant]
     Active Substance: HYDRALAZINE HYDROCHLORIDE
  10. PANCREASE MT [Concomitant]
     Active Substance: PANCRELIPASE
  11. DIOVAN [Concomitant]
     Active Substance: VALSARTAN
  12. LOMOTIL [Concomitant]
     Active Substance: ATROPINE SULFATE\DIPHENOXYLATE HYDROCHLORIDE
  13. MULTIVITAMIN [Concomitant]
     Active Substance: VITAMINS

REACTIONS (1)
  - Hospitalisation [Unknown]
